FAERS Safety Report 24447554 (Version 1)
Quarter: 2024Q4

REPORT INFORMATION
  Report Type: Spontaneous
  Country: US (occurrence: US)
  Receive Date: 20241016
  Receipt Date: 20241016
  Transmission Date: 20250115
  Serious: No
  Sender: SANOFI AVENTIS
  Company Number: US-SA-2024SA250234

PATIENT
  Age: 38 Year
  Sex: Female
  Weight: 97.97 kg

DRUGS (4)
  1. DUPIXENT [Suspect]
     Active Substance: DUPILUMAB
     Indication: Illness
     Dosage: UNK UNK, QOW
     Route: 058
  2. SULFAMETHOXAZOLE AND TRIMETHOPRIM [Concomitant]
     Active Substance: SULFAMETHOXAZOLE\TRIMETHOPRIM
     Dosage: UNKNOWN
  3. ASPIRIN [Concomitant]
     Active Substance: ASPIRIN
     Dosage: UNKNOWN
  4. IBUPROFEN [Concomitant]
     Active Substance: IBUPROFEN
     Dosage: UNKNOWN

REACTIONS (2)
  - Weight increased [Unknown]
  - Hysterectomy [Unknown]

NARRATIVE: CASE EVENT DATE: 20240101
